FAERS Safety Report 16446567 (Version 1)
Quarter: 2019Q2

REPORT INFORMATION
  Report Type: Spontaneous
  Country: IT (occurrence: IT)
  Receive Date: 20190618
  Receipt Date: 20190618
  Transmission Date: 20190711
  Serious: Yes (Hospitalization, Other)
  Sender: FDA-Public Use
  Company Number: IT-PFIZER INC-2019254937

PATIENT
  Age: 89 Year
  Sex: Female

DRUGS (6)
  1. FIDATO [Concomitant]
     Active Substance: CEFTRIAXONE SODIUM
  2. TORADIUR [TORASEMIDE SODIUM] [Concomitant]
  3. EFEXOR [Concomitant]
     Active Substance: VENLAFAXINE HYDROCHLORIDE
  4. SPIRIVA [Concomitant]
     Active Substance: TIOTROPIUM BROMIDE MONOHYDRATE
  5. MEDROL [Suspect]
     Active Substance: METHYLPREDNISOLONE
  6. FOSTER [Suspect]
     Active Substance: BECLOMETHASONE\FORMOTEROL

REACTIONS (2)
  - Leukocytosis [Unknown]
  - Hyperglycaemia [Unknown]

NARRATIVE: CASE EVENT DATE: 20190508
